FAERS Safety Report 5677045-7 (Version None)
Quarter: 2008Q1

REPORT INFORMATION
  Report Type: 
  Country: None (occurrence: None)
  Receive Date: 20080324
  Receipt Date: 20080318
  Transmission Date: 20080703
  Serious: Yes (Hospitalization)
  Sender: FDA-Public Use
  Company Number: JP-BRISTOL-MYERS SQUIBB COMPANY-14052336

PATIENT
  Age: 40 Year
  Sex: Female
  Weight: 53 kg

DRUGS (9)
  1. ABATACEPT [Suspect]
     Indication: RHEUMATOID ARTHRITIS
     Dosage: 8JUN07-27OCT07, RESTARTED 27DEC07-ONGOING, 500 MG DIV
     Route: 041
     Dates: start: 20070608
  2. METHOTREXATE TABS [Concomitant]
     Indication: RHEUMATOID ARTHRITIS
     Route: 048
     Dates: end: 20080118
  3. SULINDAC [Concomitant]
     Indication: RHEUMATOID ARTHRITIS
     Dosage: DOSE FORM=TAB
     Route: 048
     Dates: start: 20070406, end: 20080121
  4. PREDNISONE [Concomitant]
     Indication: RHEUMATOID ARTHRITIS
     Route: 048
     Dates: start: 20070406, end: 20080121
  5. MERCAZOLE [Concomitant]
     Indication: THYROID DISORDER
     Dosage: DOSE FORM=TAB
     Route: 048
     Dates: start: 20070913, end: 20080104
  6. ISALON [Concomitant]
     Indication: GASTRITIS
     Dosage: DOSE FORM=TAB
     Route: 048
     Dates: end: 20071127
  7. CIMETIDINE [Concomitant]
     Indication: GASTRITIS
     Dosage: DOSE FORM=TAB
     Route: 048
     Dates: start: 20070406, end: 20080104
  8. MAGNESIUM OXIDE [Concomitant]
     Indication: CONSTIPATION
     Dosage: 660-990 MG
     Route: 048
     Dates: start: 20071027, end: 20071101
  9. FOLIAMIN [Concomitant]
     Indication: PROPHYLAXIS
     Route: 048
     Dates: end: 20080121

REACTIONS (1)
  - UTERINE LEIOMYOMA [None]
